FAERS Safety Report 20696038 (Version 1)
Quarter: 2022Q2

REPORT INFORMATION
  Report Type: Spontaneous
  Country: US (occurrence: US)
  Receive Date: 20220411
  Receipt Date: 20220411
  Transmission Date: 20220721
  Serious: No
  Sender: FDA-Public Use
  Company Number: US-MAYNE PHARMA-2022MYN000086

PATIENT
  Sex: Male

DRUGS (1)
  1. NORTRIPTYLINE HYDROCHLORIDE [Suspect]
     Active Substance: NORTRIPTYLINE HYDROCHLORIDE
     Indication: Migraine prophylaxis
     Dosage: 10 MG, QD
     Route: 048
     Dates: start: 202203

REACTIONS (2)
  - Drug ineffective for unapproved indication [Unknown]
  - Headache [Unknown]
